FAERS Safety Report 13320688 (Version 2)
Quarter: 2017Q1

REPORT INFORMATION
  Report Type: Spontaneous
  Country: JP (occurrence: JP)
  Receive Date: 20170309
  Receipt Date: 20170331
  Transmission Date: 20170428
  Serious: Yes (Other)
  Sender: FDA-Public Use
  Company Number: JP-VIFOR (INTERNATIONAL) INC.-VIT-2017-02265

PATIENT
  Age: 70 Year
  Sex: Female

DRUGS (2)
  1. FESIN [Concomitant]
     Active Substance: IRON SUCROSE
     Dates: start: 201611
  2. MIRCERA [Suspect]
     Active Substance: METHOXY POLYETHYLENE GLYCOL-EPOETIN BETA
     Indication: NEPHROGENIC ANAEMIA
     Route: 042
     Dates: end: 201702

REACTIONS (4)
  - Blood iron decreased [Unknown]
  - Anti-erythropoietin antibody [Recovered/Resolved]
  - Drug ineffective [Unknown]
  - Haemoglobin decreased [Unknown]

NARRATIVE: CASE EVENT DATE: 201611
